FAERS Safety Report 10690126 (Version 1)
Quarter: 2015Q1

REPORT INFORMATION
  Report Type: Spontaneous
  Country: US (occurrence: None)
  Receive Date: 20150102
  Receipt Date: 20150102
  Transmission Date: 20150720
  Serious: Yes (Other)
  Sender: FDA-Public Use
  Company Number: None

PATIENT
  Age: 58 Year
  Sex: Male

DRUGS (3)
  1. LEVEDOPA [Concomitant]
  2. XTANDI [Suspect]
     Active Substance: ENZALUTAMIDE
     Indication: PROSTATIC DISORDER
     Route: 048
     Dates: start: 20140214
  3. CARBIDOPA. [Concomitant]
     Active Substance: CARBIDOPA

REACTIONS (5)
  - Mobility decreased [None]
  - Speech disorder [None]
  - Fatigue [None]
  - Agitation [None]
  - Dyskinesia [None]

NARRATIVE: CASE EVENT DATE: 20141231
